FAERS Safety Report 17716651 (Version 1)
Quarter: 2020Q2

REPORT INFORMATION
  Report Type: Spontaneous
  Country: US (occurrence: US)
  Receive Date: 20200427
  Receipt Date: 20200427
  Transmission Date: 20200714
  Serious: Yes (Hospitalization)
  Sender: FDA-Public Use
  Company Number: None

PATIENT
  Sex: Female

DRUGS (14)
  1. SIMVASTATIN. [Concomitant]
     Active Substance: SIMVASTATIN
  2. DILTIAZEM. [Concomitant]
     Active Substance: DILTIAZEM
  3. KLOR-CON M20 [Concomitant]
     Active Substance: POTASSIUM CHLORIDE
  4. ALBUTEROL. [Concomitant]
     Active Substance: ALBUTEROL
  5. FOLIC ACID. [Concomitant]
     Active Substance: FOLIC ACID
  6. PROLIA [Concomitant]
     Active Substance: DENOSUMAB
  7. ORPHENADRINE [Concomitant]
     Active Substance: ORPHENADRINE
  8. PREDNISONE. [Concomitant]
     Active Substance: PREDNISONE
  9. TIZANIDINE. [Concomitant]
     Active Substance: TIZANIDINE
  10. ANASTRAZOLE [Concomitant]
     Active Substance: ANASTROZOLE
  11. ESBRIET [Suspect]
     Active Substance: PIRFENIDONE
     Indication: IDIOPATHIC PULMONARY FIBROSIS
     Route: 048
     Dates: start: 20161115
  12. ALLOPURINOL. [Concomitant]
     Active Substance: ALLOPURINOL
  13. OMEPRAZOLE. [Concomitant]
     Active Substance: OMEPRAZOLE
  14. TORSEMIDE. [Concomitant]
     Active Substance: TORSEMIDE

REACTIONS (2)
  - Diarrhoea [None]
  - Bronchitis [None]
